FAERS Safety Report 6257191-X (Version None)
Quarter: 2009Q3

REPORT INFORMATION
  Report Type: 
  Country: None (occurrence: None)
  Receive Date: 20090706
  Receipt Date: 20090630
  Transmission Date: 20100115
  Serious: Yes (Other)
  Sender: FDA-Public Use
  Company Number: US-BAYER-200925109NA

PATIENT
  Age: 14 Year
  Sex: Male

DRUGS (1)
  1. CAMPATH [Suspect]
     Indication: LEUKAEMIA RECURRENT
     Dosage: UNIT DOSE: 30 MG/M2

REACTIONS (2)
  - EXTRASYSTOLES [None]
  - VENTRICULAR ARRHYTHMIA [None]
